FAERS Safety Report 7762685-1 (Version None)
Quarter: 2011Q3

REPORT INFORMATION
  Report Type: 
  Country: None (occurrence: None)
  Receive Date: 20110920
  Receipt Date: 20110914
  Transmission Date: 20111222
  Serious: Yes (Hospitalization)
  Sender: FDA-Public Use
  Company Number: BR-ABBOTT-11P-020-0853060-00

PATIENT
  Sex: Female

DRUGS (8)
  1. HUMIRA [Suspect]
     Indication: RHEUMATOID ARTHRITIS
     Dates: start: 20110801
  2. SPIRONOLACTONE [Concomitant]
     Indication: HYPERTENSION
     Dates: start: 20110401
  3. CALCIUM CARBONATE [Concomitant]
     Indication: MUSCULOSKELETAL PAIN
  4. LOSARTAN POTASSIUM [Concomitant]
     Indication: HYPERTENSION
     Dates: start: 20110401
  5. METHOTREXATE [Concomitant]
     Indication: RHEUMATOID ARTHRITIS
  6. ATENOLOL [Concomitant]
     Indication: HYPERTENSION
     Dates: start: 20110401
  7. METFORMIN HCL [Concomitant]
     Indication: DIABETES MELLITUS
  8. OMEPRAZOLE [Concomitant]
     Indication: GASTRITIS

REACTIONS (2)
  - NAIL INFECTION [None]
  - BLOOD PRESSURE INCREASED [None]
